FAERS Safety Report 22186757 (Version 4)
Quarter: 2024Q1

REPORT INFORMATION
  Report Type: Spontaneous
  Country: US (occurrence: US)
  Receive Date: 20230407
  Receipt Date: 20240105
  Transmission Date: 20240409
  Serious: Yes (Hospitalization, Other)
  Sender: FDA-Public Use
  Company Number: US-VERTEX PHARMACEUTICALS-2022-017545

PATIENT
  Sex: Female
  Weight: 25 kg

DRUGS (12)
  1. TRIKAFTA [Suspect]
     Active Substance: ELEXACAFTOR\IVACAFTOR\TEZACAFTOR
     Indication: Cystic fibrosis
     Dosage: 2 ORANGE TABS AM, 1 BLUE TAB PM
     Route: 048
     Dates: start: 20220819, end: 202211
  2. FLOVENT DISKUS [Concomitant]
     Active Substance: FLUTICASONE PROPIONATE
  3. OMEPRAZOLE [Concomitant]
     Active Substance: OMEPRAZOLE
  4. PERTZYE [Concomitant]
     Active Substance: PANCRELIPASE AMYLASE\PANCRELIPASE LIPASE\PANCRELIPASE PROTEASE
     Dosage: 16K-57.5 K
  5. MIRALAX [Concomitant]
     Active Substance: POLYETHYLENE GLYCOL 3350
  6. PULMOZYME [Concomitant]
     Active Substance: DORNASE ALFA
  7. PROAIR HFA [Concomitant]
     Active Substance: ALBUTEROL SULFATE
  8. PREVACID [Concomitant]
     Active Substance: LANSOPRAZOLE
  9. CREON [Concomitant]
     Active Substance: PANCRELIPASE AMYLASE\PANCRELIPASE LIPASE\PANCRELIPASE PROTEASE
     Dosage: 3-9.5-15K CAPSULE
  10. SODIUM CHLORIDE [Concomitant]
     Active Substance: SODIUM CHLORIDE
  11. FERROUS SULFATE [Concomitant]
     Active Substance: FERROUS SULFATE
     Dosage: 220 (44)5
  12. MOTRIN IB [Concomitant]
     Active Substance: IBUPROFEN

REACTIONS (10)
  - Alanine aminotransferase increased [Recovering/Resolving]
  - Hepatitis [Recovering/Resolving]
  - Pancreatitis acute [Recovered/Resolved]
  - Rhinovirus infection [Not Recovered/Not Resolved]
  - Infective pulmonary exacerbation of cystic fibrosis [Unknown]
  - Hepatic steatosis [Unknown]
  - Cystic fibrosis hepatic disease [Unknown]
  - Illness [Unknown]
  - Dehydration [Unknown]
  - Respiratory syncytial virus infection [Unknown]

NARRATIVE: CASE EVENT DATE: 20220101
